FAERS Safety Report 7280673-9 (Version None)
Quarter: 2011Q1

REPORT INFORMATION
  Report Type: 
  Country: None (occurrence: None)
  Receive Date: 20110208
  Receipt Date: 20110201
  Transmission Date: 20110831
  Serious: Yes (Hospitalization, Other)
  Sender: FDA-Public Use
  Company Number: A0906499A

PATIENT
  Age: 57 Year
  Sex: Male
  Weight: 94.5 kg

DRUGS (4)
  1. LAMICTAL [Suspect]
     Indication: HEADACHE
     Dosage: 50MG UNKNOWN
     Route: 048
     Dates: start: 20100315, end: 20100405
  2. LORTAB [Concomitant]
     Indication: HEADACHE
  3. PRILOSEC [Concomitant]
  4. MOTRIN [Concomitant]

REACTIONS (6)
  - TIC [None]
  - DISABILITY [None]
  - DYSKINESIA [None]
  - DIZZINESS [None]
  - TREMOR [None]
  - TOURETTE'S DISORDER [None]
